FAERS Safety Report 7234006-4 (Version None)
Quarter: 2011Q1

REPORT INFORMATION
  Report Type: 
  Country: None (occurrence: None)
  Receive Date: 20110119
  Receipt Date: 20101118
  Transmission Date: 20110831
  Serious: No
  Sender: FDA-Public Use
  Company Number: US-BAYER-2010-006016

PATIENT
  Sex: Female
  Weight: 68 kg

DRUGS (3)
  1. ASPIRIN [Suspect]
     Indication: PAIN IN EXTREMITY
     Dosage: UNK
     Route: 048
     Dates: start: 20100301
  2. ALEVE (CAPLET) [Suspect]
     Indication: PAIN IN EXTREMITY
     Dosage: UNK
     Route: 048
     Dates: start: 20100101
  3. MOTRIN [Concomitant]

REACTIONS (2)
  - ABDOMINAL PAIN LOWER [None]
  - TOOTHACHE [None]
